FAERS Safety Report 6161121-9 (Version None)
Quarter: 2009Q2

REPORT INFORMATION
  Report Type: 
  Country: None (occurrence: None)
  Receive Date: 20090417
  Receipt Date: 20090417
  Transmission Date: 20091009
  Serious: Yes (Other)
  Sender: FDA-Public Use
  Company Number: None

PATIENT
  Age: 80 Year
  Sex: Male
  Weight: 72.5755 kg

DRUGS (2)
  1. CARDURA [Suspect]
     Indication: PROSTATIC DISORDER
     Dosage: ONE PER DAY
     Dates: start: 20090329
  2. LISINOPRIL [Suspect]

REACTIONS (3)
  - FALL [None]
  - HYPOTENSION [None]
  - SYNCOPE [None]
